FAERS Safety Report 24368054 (Version 1)
Quarter: 2024Q3

REPORT INFORMATION
  Report Type: Spontaneous
  Country: FR (occurrence: FR)
  Receive Date: 20240926
  Receipt Date: 20240926
  Transmission Date: 20241016
  Serious: Yes (Other)
  Sender: PFIZER
  Company Number: FR-PFIZER INC-PV202400123448

PATIENT

DRUGS (1)
  1. ELRANATAMAB [Suspect]
     Active Substance: ELRANATAMAB

REACTIONS (2)
  - Neurotoxicity [Unknown]
  - Cerebellar ataxia [Unknown]
